FAERS Safety Report 4970435-7 (Version None)
Quarter: 2006Q2

REPORT INFORMATION
  Report Type: 
  Country: None (occurrence: None)
  Receive Date: 20060412
  Receipt Date: 20060318
  Transmission Date: 20061013
  Serious: Yes (Hospitalization, Other)
  Sender: FDA-Public Use
  Company Number: 2006AP01376

PATIENT
  Age: 17608 Day
  Sex: Female

DRUGS (5)
  1. IRESSA [Suspect]
     Indication: LIP AND/OR ORAL CAVITY CANCER RECURRENT
     Route: 048
     Dates: start: 20050825
  2. LIGNOCAINE [Concomitant]
     Indication: PROPHYLAXIS
     Route: 048
     Dates: start: 20050823
  3. MULTIVITAMIN [Concomitant]
     Indication: MEDICAL DIET
     Route: 048
     Dates: start: 20050821
  4. CLOGEN [Concomitant]
     Indication: INFECTION PROPHYLAXIS
     Route: 048
     Dates: start: 20050822
  5. POTASSIUM CHLORIDE [Concomitant]
     Indication: HYPOKALAEMIA
     Route: 048
     Dates: start: 20050823

REACTIONS (1)
  - ANAEMIA [None]
